FAERS Safety Report 4966162-2 (Version None)
Quarter: 2006Q2

REPORT INFORMATION
  Report Type: 
  Country: None (occurrence: None)
  Receive Date: 20060407
  Receipt Date: 20060401
  Transmission Date: 20061013
  Serious: Yes (Other)
  Sender: FDA-Public Use
  Company Number: GB-GLAXOSMITHKLINE-B0418853A

PATIENT
  Sex: Female

DRUGS (6)
  1. NIQUITIN CQ 14MG [Suspect]
     Dosage: 14MG PER DAY
     Route: 062
     Dates: start: 20060216, end: 20060308
  2. NIQUITIN CQ 7MG [Suspect]
     Dosage: 7MG PER DAY
     Route: 062
  3. LANSOPRAZOLE [Concomitant]
     Route: 048
  4. COMBIVENT [Concomitant]
     Route: 055
  5. PARACETAMOL [Concomitant]
  6. CODEINE PHOSPHATE [Concomitant]
     Dosage: 30MG AS REQUIRED
     Route: 048

REACTIONS (1)
  - HALLUCINATION, VISUAL [None]
